FAERS Safety Report 10441317 (Version 2)
Quarter: 2014Q3

REPORT INFORMATION
  Report Type: Other
  Country: US (occurrence: US)
  Receive Date: 20140909
  Receipt Date: 20140909
  Transmission Date: 20150326
  Serious: Yes (Other)
  Sender: FDA-Public Use
  Company Number: US-SHIRE-US201403911

PATIENT
  Sex: Female

DRUGS (1)
  1. VPRIV [Suspect]
     Active Substance: VELAGLUCERASE ALFA
     Indication: GAUCHER^S DISEASE
     Dosage: 6000 IU (15 VIALS), OTHER(BI-MONTHLY)
     Route: 041
     Dates: start: 20100610

REACTIONS (3)
  - Medical device complication [Unknown]
  - Intervertebral disc injury [Not Recovered/Not Resolved]
  - Fatigue [Not Recovered/Not Resolved]
